FAERS Safety Report 5612580-9 (Version None)
Quarter: 2008Q1

REPORT INFORMATION
  Report Type: 
  Country: None (occurrence: None)
  Receive Date: 20080204
  Receipt Date: 20080128
  Transmission Date: 20080703
  Serious: Yes (Hospitalization)
  Sender: FDA-Public Use
  Company Number: A0701450A

PATIENT
  Age: 81 Year
  Sex: Male

DRUGS (5)
  1. ADVAIR DISKUS 100/50 [Suspect]
     Indication: DRUG USE FOR UNKNOWN INDICATION
     Dosage: 1PUFF TWICE PER DAY
     Route: 055
     Dates: start: 20030601
  2. LISINOPRIL [Concomitant]
     Route: 048
  3. PLAVIX [Concomitant]
     Route: 048
  4. VYTORIN [Concomitant]
     Route: 048
  5. COMBIVENT [Concomitant]
     Dosage: 2PUFF FOUR TIMES PER DAY
     Route: 055

REACTIONS (3)
  - CONDITION AGGRAVATED [None]
  - DRUG INEFFECTIVE [None]
  - PHARMACEUTICAL PRODUCT COMPLAINT [None]
